FAERS Safety Report 12055885 (Version 1)
Quarter: 2016Q1

REPORT INFORMATION
  Report Type: Spontaneous
  Country: DE (occurrence: DE)
  Receive Date: 20160209
  Receipt Date: 20160209
  Transmission Date: 20160526
  Serious: Yes (Death)
  Sender: FDA-Public Use
  Company Number: DE-OTSUKA-2015_008533

PATIENT
  Age: 75 Year
  Sex: Male

DRUGS (3)
  1. PK-MERZ [Concomitant]
     Active Substance: AMANTADINE
     Indication: PRODUCT USED FOR UNKNOWN INDICATION
     Dosage: UNK
     Route: 051
  2. SAMSCA [Suspect]
     Active Substance: TOLVAPTAN
     Indication: INAPPROPRIATE ANTIDIURETIC HORMONE SECRETION
     Dosage: 7.5 MG, QD (HALF 15 MG)
     Route: 065
     Dates: start: 20150603, end: 20150603
  3. SAMSCA [Suspect]
     Active Substance: TOLVAPTAN
     Indication: HYPONATRAEMIA

REACTIONS (4)
  - Wrong technique in product usage process [Unknown]
  - C-reactive protein increased [Unknown]
  - Underdose [Unknown]
  - Death [Fatal]

NARRATIVE: CASE EVENT DATE: 20150603
